FAERS Safety Report 10163839 (Version 1)
Quarter: 2014Q2

REPORT INFORMATION
  Report Type: Spontaneous
  Country: US (occurrence: US)
  Receive Date: 20140509
  Receipt Date: 20140509
  Transmission Date: 20141212
  Serious: Yes (Other)
  Sender: FDA-Public Use
  Company Number: US-BIOMARINAP-US-2014-103154

PATIENT
  Age: 5 Year
  Sex: Male
  Weight: 13.6 kg

DRUGS (1)
  1. NAGLAZYME [Suspect]
     Indication: MUCOPOLYSACCHARIDOSIS VI
     Dosage: 15 MG, QW
     Route: 041
     Dates: start: 20130418

REACTIONS (2)
  - Viral infection [Not Recovered/Not Resolved]
  - Pyrexia [Recovered/Resolved]
